FAERS Safety Report 7305275-7 (Version None)
Quarter: 2011Q1

REPORT INFORMATION
  Report Type: 
  Country: None (occurrence: None)
  Receive Date: 20110222
  Receipt Date: 20110215
  Transmission Date: 20110831
  Serious: Yes (Other)
  Sender: FDA-Public Use
  Company Number: CL-PFIZER INC-2011034091

PATIENT
  Age: 43 Year
  Sex: Female

DRUGS (5)
  1. CHLORPROMAZINE [Concomitant]
     Dosage: 100 MG, 1X/DAY
     Dates: start: 20090101
  2. CARBAMAZEPINE [Concomitant]
     Dosage: 800 MG, 1X/DAY
     Dates: start: 19910101
  3. DEPO-PRODASONE [Suspect]
     Indication: CONTRACEPTION
     Dosage: 150 MG,
     Dates: start: 20110101
  4. SERTRALINE HYDROCHLORIDE [Concomitant]
     Dosage: 150 MG, 1X/DAY
     Dates: start: 19910101
  5. CLONAZEPAM [Concomitant]
     Dosage: 2 MG, 2X/DAY
     Dates: start: 19910101

REACTIONS (10)
  - BLOOD PRESSURE INCREASED [None]
  - DEPRESSION [None]
  - FLUID RETENTION [None]
  - SYNCOPE [None]
  - MUSCLE SPASMS [None]
  - INSOMNIA [None]
  - GALACTORRHOEA [None]
  - NAUSEA [None]
  - ALOPECIA [None]
  - RASH [None]
